FAERS Safety Report 4432190-9 (Version None)
Quarter: 2004Q3

REPORT INFORMATION
  Report Type: 
  Country: None (occurrence: None)
  Receive Date: 20040818
  Receipt Date: 20040811
  Transmission Date: 20050211
  Serious: Yes (Other)
  Sender: FDA-Public Use
  Company Number: 2004227946US

PATIENT
  Sex: Female

DRUGS (4)
  1. PROVERA [Suspect]
     Dosage: UNK
     Route: 065
  2. PREMARIN [Suspect]
     Dosage: UNK
     Route: 065
  3. PREMPRO [Suspect]
     Dosage: UNK
     Route: 065
  4. ESTROGENS () [Suspect]
     Dosage: UNK
     Route: 065

REACTIONS (1)
  - BREAST CANCER FEMALE [None]
